FAERS Safety Report 23528859 (Version 2)
Quarter: 2024Q2

REPORT INFORMATION
  Report Type: Spontaneous
  Country: IT (occurrence: IT)
  Receive Date: 20240215
  Receipt Date: 20240408
  Transmission Date: 20240717
  Serious: Yes (Other)
  Sender: FDA-Public Use
  Company Number: None

PATIENT
  Age: 84 Year
  Sex: Male

DRUGS (7)
  1. XARELTO [Suspect]
     Active Substance: RIVAROXABAN
     Indication: Atrial fibrillation
     Dosage: 20 MG, QD
     Route: 048
     Dates: start: 202207, end: 202305
  2. MIRTAZAPINE [Concomitant]
     Active Substance: MIRTAZAPINE
     Dosage: 30 MG 30 TABLETS DOC. DOSAGE SCHEDULE: 1/4 AT 8.00 A.M. AND 1/2 AT 10.00 P.M
     Route: 048
     Dates: start: 202009
  3. CHOLECALCIFEROL [Concomitant]
     Active Substance: CHOLECALCIFEROL
     Dosage: ANNISTER ORAL SOLUTION 2 VIALS 2.5ML25000UI 1 BOTTLE EVERY 15 DAYS
     Route: 048
     Dates: start: 202211
  4. SILODOSIN [Concomitant]
     Active Substance: SILODOSIN
     Dosage: 8 MG 30 TABLETS BLISTER. PVC (POLYVINYL CHLORIDE). DOSAGE SCHEDULE: 1 TABLET A DAY (IN THE EVENING)
     Route: 048
     Dates: start: 201711
  5. ATORVASTATIN [Concomitant]
     Active Substance: ATORVASTATIN
     Dosage: *30 COATED TABLETS 10MG. DOSAGE SCHEDULE^: 1 TABLET A DAY (IN THE EVENING)
     Route: 048
     Dates: start: 201411
  6. BISOPROLOL FUMARATE\PERINDOPRIL ARGININE [Concomitant]
     Active Substance: BISOPROLOL FUMARATE\PERINDOPRIL ARGININE
     Dosage: 10MG/5MG 30 TABLETS. DOSAGE SCHEDULE: 1 TABLET IN THE EVENING
     Route: 048
     Dates: start: 2020
  7. LEVOTHYROXINE SODIUM [Concomitant]
     Active Substance: LEVOTHYROXINE SODIUM
     Dosage: 25 MCG 50 TABLETS. DOSAGE SCHEDULE: 1 TABLET A DAY
     Route: 048
     Dates: start: 202009

REACTIONS (1)
  - Renal failure [Recovering/Resolving]

NARRATIVE: CASE EVENT DATE: 20230501
